FAERS Safety Report 12957518 (Version 2)
Quarter: 2016Q4

REPORT INFORMATION
  Report Type: Spontaneous
  Country: US (occurrence: US)
  Receive Date: 20161118
  Receipt Date: 20161202
  Transmission Date: 20170207
  Serious: Yes (Other)
  Sender: FDA-Public Use
  Company Number: US-SUPERNUS PHARMACEUTICALS, INC.-2016SUP00187

PATIENT
  Sex: Male
  Weight: 108.84 kg

DRUGS (10)
  1. TROKENDI XR [Suspect]
     Active Substance: TOPIRAMATE
     Dosage: 250 MG, UNK
     Dates: start: 2016, end: 2016
  2. TROKENDI XR [Suspect]
     Active Substance: TOPIRAMATE
     Dosage: 250 MG, UNK
     Dates: start: 201611, end: 201611
  3. TROKENDI XR [Suspect]
     Active Substance: TOPIRAMATE
     Indication: HEMIPLEGIC MIGRAINE
     Dosage: 50 MG, UNK
     Route: 048
     Dates: start: 201509, end: 2015
  4. OMEPRAZOLE (CALLER STATES IT IS PROZAC), [Concomitant]
  5. TROKENDI XR [Suspect]
     Active Substance: TOPIRAMATE
     Dosage: 200 MG, UNK
     Dates: start: 2015, end: 201604
  6. VALSARTAN. [Concomitant]
     Active Substance: VALSARTAN
  7. ATIVAN [Suspect]
     Active Substance: LORAZEPAM
     Dosage: UNK, 1X/DAY (AT NIGHT)
  8. TROKENDI XR [Suspect]
     Active Substance: TOPIRAMATE
     Dosage: 100 MG, UNK
     Dates: start: 201604, end: 2016
  9. TROKENDI XR [Suspect]
     Active Substance: TOPIRAMATE
     Dosage: 100 MG, 2X/DAY (12 HOURS APART)
     Dates: start: 2016
  10. LEVOTHYROXINE. [Concomitant]
     Active Substance: LEVOTHYROXINE

REACTIONS (7)
  - Abnormal behaviour [Recovered/Resolved]
  - Potentiating drug interaction [Unknown]
  - Incontinence [Recovered/Resolved]
  - Off label use [Not Recovered/Not Resolved]
  - Muscle injury [Recovered/Resolved]
  - Somnolence [Unknown]
  - Monoplegia [Recovered/Resolved]

NARRATIVE: CASE EVENT DATE: 2015
